FAERS Safety Report 20724578 (Version 2)
Quarter: 2022Q2

REPORT INFORMATION
  Report Type: Spontaneous
  Country: CA (occurrence: CA)
  Receive Date: 20220419
  Receipt Date: 20220421
  Transmission Date: 20220721
  Serious: Yes (Other)
  Sender: FDA-Public Use
  Company Number: CA-PFIZER INC-202200580650

PATIENT
  Age: 74 Year
  Sex: Female

DRUGS (2)
  1. XELJANZ [Suspect]
     Active Substance: TOFACITINIB CITRATE
     Indication: Rheumatoid arthritis
     Dosage: 5 MG, 2X/DAY,
     Route: 048
     Dates: start: 20190703
  2. CELEBREX [Concomitant]
     Active Substance: CELECOXIB
     Dosage: 1 DF DOSAGE INFORMATION NOT AVAILABLE
     Route: 065

REACTIONS (1)
  - Neoplasm malignant [Unknown]

NARRATIVE: CASE EVENT DATE: 20220201
